FAERS Safety Report 9548399 (Version 2)
Quarter: 2013Q4

REPORT INFORMATION
  Report Type: Report from Study
  Country: DE (occurrence: DE)
  Receive Date: 20130924
  Receipt Date: 20131014
  Transmission Date: 20140711
  Serious: Yes (Hospitalization, Other)
  Sender: FDA-Public Use
  Company Number: PHHY2013DE105642

PATIENT
  Sex: 0

DRUGS (10)
  1. MYCOPHENOLIC ACID [Suspect]
     Dosage: 720 MG, BID
     Dates: start: 20081116
  2. MYCOPHENOLIC ACID [Suspect]
     Dosage: 360 MG, UNK
     Route: 048
     Dates: end: 20090121
  3. MYCOPHENOLIC ACID [Suspect]
     Dosage: UNK UKN, UNK
     Route: 048
     Dates: start: 2009
  4. SANDIMMUN OPTORAL [Concomitant]
     Indication: PROPHYLAXIS AGAINST TRANSPLANT REJECTION
     Dosage: 100 MG, BID
     Dates: start: 20081114
  5. SANDIMMUN OPTORAL [Concomitant]
     Dosage: 300 MG, DAILY
     Dates: start: 20081115
  6. SANDIMMUN OPTORAL [Concomitant]
     Dosage: 200 MG, BID
     Dates: start: 20081116
  7. SANDIMMUN OPTORAL [Concomitant]
     Dosage: 225 MG, BID
     Dates: start: 20081122
  8. PROGRAF [Concomitant]
     Indication: PROPHYLAXIS AGAINST TRANSPLANT REJECTION
     Dosage: 2.25 MG, BID
     Dates: start: 20090402
  9. DECORTIN [Concomitant]
     Indication: PROPHYLAXIS AGAINST TRANSPLANT REJECTION
     Dosage: 10 MG, DAILY
     Dates: start: 20081115
  10. MYCOPHENOLIC ACID [Suspect]
     Indication: PROPHYLAXIS AGAINST TRANSPLANT REJECTION
     Dosage: 360 MG, BID
     Dates: start: 20081114

REACTIONS (2)
  - Dehydration [Unknown]
  - Renal failure acute [Recovering/Resolving]
